FAERS Safety Report 7605130-9 (Version None)
Quarter: 2011Q3

REPORT INFORMATION
  Report Type: 
  Country: None (occurrence: None)
  Receive Date: 20110713
  Receipt Date: 20110131
  Transmission Date: 20111222
  Serious: Yes (Death, Hospitalization, Other)
  Sender: FDA-Public Use
  Company Number: US-BAYER-201010641NA

PATIENT
  Age: 74 Year
  Sex: Male
  Weight: 77 kg

DRUGS (14)
  1. TRASYLOL [Suspect]
     Indication: HIGH FREQUENCY ABLATION
     Dosage: 2000000 KIU, UNK, PUMP PRIME
     Route: 042
     Dates: start: 20060308, end: 20060308
  2. INSULIN [Concomitant]
  3. LISINOPRIL [Concomitant]
  4. ALDACTONE [Concomitant]
  5. RED BLOOD CELLS [Concomitant]
     Dosage: 2 UNITS
     Route: 042
     Dates: start: 20060426, end: 20060426
  6. ETOMIDATE [Concomitant]
     Dosage: UNK
     Dates: start: 20060308
  7. DIGOXIN [Concomitant]
  8. PLATELETS [Concomitant]
     Dosage: 2 U, UNK
     Dates: start: 20060308
  9. TRASYLOL [Suspect]
     Indication: CORONARY ARTERY BYPASS
     Dosage: LOADING DOSE: 600ML/HR FOLLOWED BY 20ML/HR THEN 50ML/HR
     Route: 042
     Dates: start: 20060308, end: 20060308
  10. RED BLOOD CELLS [Concomitant]
     Dosage: 3 U, UNK
     Dates: start: 20060308
  11. EPINEPHRINE [Concomitant]
     Dosage: UNK
     Dates: start: 20060308
  12. FRESH FROZEN PLASMA [Concomitant]
     Dosage: 4 U, UNK
     Dates: start: 20060308
  13. LASIX [Concomitant]
  14. HEPARIN [Concomitant]
     Dosage: UNK
     Dates: start: 20060308

REACTIONS (11)
  - UNEVALUABLE EVENT [None]
  - ANXIETY [None]
  - FEAR [None]
  - DEPRESSION [None]
  - ANHEDONIA [None]
  - DEATH [None]
  - RENAL FAILURE [None]
  - MYOCARDIAL INFARCTION [None]
  - INJURY [None]
  - PAIN [None]
  - CEREBROVASCULAR ACCIDENT [None]
